FAERS Safety Report 9912970 (Version 2)
Quarter: 2014Q2

REPORT INFORMATION
  Report Type: Spontaneous
  Country: GB (occurrence: None)
  Receive Date: 20140212
  Receipt Date: 20140502
  Transmission Date: 20141212
  Serious: Yes (Hospitalization, Other)
  Sender: FDA-Public Use
  Company Number: GB-ALKEM-000489

PATIENT
  Age: 48 Hour
  Sex: Female
  Weight: 2.26 kg

DRUGS (1)
  1. QUETIAPINE [Suspect]
     Indication: PRODUCT USED FOR UNKNOWN INDICATION
     Route: 064

REACTIONS (4)
  - Foetal exposure during pregnancy [None]
  - Vomiting [None]
  - Drug withdrawal syndrome neonatal [None]
  - Drug withdrawal syndrome [None]
